FAERS Safety Report 9643824 (Version 1)
Quarter: 2013Q4

REPORT INFORMATION
  Report Type: Spontaneous
  Country: US (occurrence: US)
  Receive Date: 20131024
  Receipt Date: 20131024
  Transmission Date: 20140711
  Serious: No
  Sender: FDA-Public Use
  Company Number: US-TEVA-440089USA

PATIENT
  Sex: Female
  Weight: 54.48 kg

DRUGS (6)
  1. NUVIGIL [Suspect]
     Indication: NARCOLEPSY
     Dosage: EVERY AM
     Route: 048
     Dates: start: 20131015
  2. DEPAKOTE [Concomitant]
     Indication: BIPOLAR DISORDER
  3. SEROQUEL [Concomitant]
     Indication: BIPOLAR DISORDER
  4. SYNTHROID [Concomitant]
  5. ALPRAZOLAM [Concomitant]
     Indication: PANIC DISORDER
  6. VALIUM [Concomitant]

REACTIONS (3)
  - Nervousness [Recovered/Resolved]
  - Anxiety [Recovered/Resolved]
  - Panic attack [Recovered/Resolved]
